FAERS Safety Report 18807055 (Version 1)
Quarter: 2021Q1

REPORT INFORMATION
  Report Type: Spontaneous
  Country: US (occurrence: US)
  Receive Date: 20210129
  Receipt Date: 20210129
  Transmission Date: 20210419
  Serious: Yes (Hospitalization)
  Sender: FDA-Public Use
  Company Number: None

PATIENT
  Age: 39 Year
  Sex: Female
  Weight: 66.9 kg

DRUGS (8)
  1. CYTARABINE. [Suspect]
     Active Substance: CYTARABINE
  2. DEXAMETHASONE. [Suspect]
     Active Substance: DEXAMETHASONE
  3. MERCAPTOPURINE. [Suspect]
     Active Substance: MERCAPTOPURINE
  4. CYCLOPHOSPHAMIDE. [Suspect]
     Active Substance: CYCLOPHOSPHAMIDE
  5. VINCRISTINE SULFATE. [Suspect]
     Active Substance: VINCRISTINE SULFATE
  6. ONCASPAR [Suspect]
     Active Substance: PEGASPARGASE
  7. DAUNORUBICIN [Suspect]
     Active Substance: DAUNORUBICIN
  8. METHOTREXATE. [Suspect]
     Active Substance: METHOTREXATE

REACTIONS (1)
  - Hypotension [None]

NARRATIVE: CASE EVENT DATE: 20210121
